FAERS Safety Report 23215954 (Version 1)
Quarter: 2023Q4

REPORT INFORMATION
  Report Type: Spontaneous
  Country: US (occurrence: US)
  Receive Date: 20231122
  Receipt Date: 20231122
  Transmission Date: 20240110
  Serious: No
  Sender: FDA-Public Use
  Company Number: US-ALKEM LABORATORIES LIMITED-US-ALKEM-2023-05512

PATIENT
  Sex: Female

DRUGS (2)
  1. ISONIAZID [Suspect]
     Active Substance: ISONIAZID
     Indication: Latent tuberculosis
     Dosage: UNK
     Route: 065
  2. RIFAMPIN [Suspect]
     Active Substance: RIFAMPIN
     Indication: Latent tuberculosis
     Dosage: UNK
     Route: 065

REACTIONS (1)
  - Tinnitus [Unknown]
